FAERS Safety Report 14149755 (Version 1)
Quarter: 2017Q4

REPORT INFORMATION
  Report Type: Report from Study
  Country: BR (occurrence: BR)
  Receive Date: 20171101
  Receipt Date: 20171101
  Transmission Date: 20180321
  Serious: Yes (Life-Threatening, Other)
  Sender: FDA-Public Use
  Company Number: PHHY2017BR160374

PATIENT
  Sex: Male
  Weight: 96 kg

DRUGS (3)
  1. DIOVAN [Suspect]
     Active Substance: VALSARTAN
     Indication: HYPERTENSION
     Dosage: UNK UNK, QD
     Route: 048
  2. FORASEQ [Suspect]
     Active Substance: BUDESONIDE\FORMOTEROL FUMARATE
     Indication: ASTHMA
     Dosage: UNK UNK, QD
     Route: 055
  3. DIOVAN HCT [Suspect]
     Active Substance: HYDROCHLOROTHIAZIDE\VALSARTAN
     Indication: HYPERTENSION
     Dosage: 1 DF, QD (HYDROCHLOROTHIAZIDE 25 MG, VALSARTAN 320 MG)
     Route: 048

REACTIONS (8)
  - Blood pressure increased [Unknown]
  - Swelling [Recovered/Resolved]
  - Fluid retention [Unknown]
  - Headache [Unknown]
  - Pollakiuria [Unknown]
  - Feeling abnormal [Unknown]
  - Device issue [Unknown]
  - Fatigue [Unknown]
